FAERS Safety Report 9472100 (Version 1)
Quarter: 2013Q3

REPORT INFORMATION
  Report Type: Spontaneous
  Country: TW (occurrence: TW)
  Receive Date: 20130823
  Receipt Date: 20130823
  Transmission Date: 20140515
  Serious: Yes (Other)
  Sender: FDA-Public Use
  Company Number: TW-009507513-1308TWN009020

PATIENT
  Sex: Female

DRUGS (2)
  1. FOSAMAX [Suspect]
     Indication: OSTEOPOROSIS
     Dosage: TOTAL DAILY DOSE 70 MG WEEKLY
     Route: 048
     Dates: start: 2002
  2. FOSAMAX [Suspect]
     Dosage: DAILY DOSAGE OF 70 MG WEEKLY
     Route: 048
     Dates: end: 2011

REACTIONS (2)
  - Thoracic vertebral fracture [Recovered/Resolved]
  - Cough [Unknown]
